FAERS Safety Report 13159883 (Version 2)
Quarter: 2017Q1

REPORT INFORMATION
  Report Type: Report from Study
  Country: None (occurrence: CO)
  Receive Date: 20170127
  Receipt Date: 20170309
  Transmission Date: 20170428
  Serious: Yes (Other)
  Sender: FDA-Public Use
  Company Number: CO-ABBVIE-17P-036-1854746-00

PATIENT
  Age: 56 Year
  Sex: Male
  Weight: 70 kg

DRUGS (2)
  1. HUMIRA [Suspect]
     Active Substance: ADALIMUMAB
     Route: 058
     Dates: start: 20170306
  2. HUMIRA [Suspect]
     Active Substance: ADALIMUMAB
     Indication: ANKYLOSING SPONDYLITIS
     Route: 058
     Dates: start: 20091015, end: 20170104

REACTIONS (1)
  - Haemorrhoids [Recovered/Resolved]

NARRATIVE: CASE EVENT DATE: 20150625
